FAERS Safety Report 7210574-3 (Version None)
Quarter: 2011Q1

REPORT INFORMATION
  Report Type: 
  Country: None (occurrence: None)
  Receive Date: 20110105
  Receipt Date: 20110103
  Transmission Date: 20110831
  Serious: Yes (Life-Threatening, Hospitalization)
  Sender: FDA-Public Use
  Company Number: FR-ROCHE-695726

PATIENT
  Sex: Female
  Weight: 71 kg

DRUGS (6)
  1. TAXOTERE [Suspect]
     Dosage: FORM: VIAL
     Route: 042
     Dates: start: 20100304
  2. BEVACIZUMAB [Suspect]
     Route: 042
     Dates: end: 20101227
  3. BEVACIZUMAB [Suspect]
     Route: 042
     Dates: start: 20100712
  4. BEVACIZUMAB [Suspect]
     Dosage: FORM: INFUSION
     Route: 042
     Dates: start: 20100304
  5. NOCTAMIDE [Concomitant]
     Dates: start: 19950301
  6. SOTALOL HCL [Concomitant]
     Dates: start: 19950301

REACTIONS (4)
  - DECREASED APPETITE [None]
  - GENERAL PHYSICAL HEALTH DETERIORATION [None]
  - BACK PAIN [None]
  - NEUTROPENIA [None]
